FAERS Safety Report 9049162 (Version 1)
Quarter: 2013Q1

REPORT INFORMATION
  Report Type: Spontaneous
  Country: US (occurrence: None)
  Receive Date: 20130130
  Receipt Date: 20130130
  Transmission Date: 20140127
  Serious: Yes (Life-Threatening, Hospitalization, Disabling, Other)
  Sender: FDA-Public Use
  Company Number: None

PATIENT
  Age: 51 Year
  Sex: Female
  Weight: 68.49 kg

DRUGS (1)
  1. CYMBALTA [Suspect]
     Indication: DEPRESSION
     Dosage: ONCE DAILY
     Route: 048
     Dates: start: 20121031

REACTIONS (17)
  - Pruritus [None]
  - Dermatitis [None]
  - Dyspnoea [None]
  - Muscular weakness [None]
  - Fall [None]
  - Confusional state [None]
  - Decreased appetite [None]
  - Hypophagia [None]
  - Walking aid user [None]
  - Balance disorder [None]
  - Urinary tract disorder [None]
  - Pigmentation disorder [None]
  - Abdominal pain [None]
  - Constipation [None]
  - Depression [None]
  - Panic attack [None]
  - Fear [None]
